FAERS Safety Report 12903593 (Version 1)
Quarter: 2016Q4

REPORT INFORMATION
  Report Type: Spontaneous
  Country: CN (occurrence: CN)
  Receive Date: 20161102
  Receipt Date: 20161102
  Transmission Date: 20170207
  Serious: Yes (Other)
  Sender: FDA-Public Use
  Company Number: CN-BAXTER-2016BAX055173

PATIENT
  Age: 72 Year
  Sex: Male

DRUGS (1)
  1. 20% MANNITOL INJECTION [Suspect]
     Active Substance: MANNITOL
     Indication: POSTOPERATIVE CARE
     Route: 041
     Dates: start: 20160426, end: 20160426

REACTIONS (2)
  - Palpitations [Recovering/Resolving]
  - Dysphoria [Recovering/Resolving]

NARRATIVE: CASE EVENT DATE: 20160426
